FAERS Safety Report 7534295-2 (Version None)
Quarter: 2011Q2

REPORT INFORMATION
  Report Type: 
  Country: None (occurrence: None)
  Receive Date: 20110608
  Receipt Date: 20070108
  Transmission Date: 20111010
  Serious: Yes (Death)
  Sender: FDA-Public Use
  Company Number: PHMT2006CA02279

PATIENT
  Sex: Female

DRUGS (1)
  1. CLOZAPINE [Suspect]
     Indication: HUNTINGTON'S DISEASE
     Dosage: UNK, UNK
     Route: 048
     Dates: start: 19990412, end: 20061201

REACTIONS (2)
  - PULMONARY OEDEMA [None]
  - HUNTINGTON'S DISEASE [None]
